FAERS Safety Report 9303623 (Version 1)
Quarter: 2013Q2

REPORT INFORMATION
  Report Type: Spontaneous
  Country: US (occurrence: None)
  Receive Date: 20130521
  Receipt Date: 20130521
  Transmission Date: 20140414
  Serious: No
  Sender: FDA-Public Use
  Company Number: None

PATIENT
  Age: 45 Year
  Sex: Male
  Weight: 128.3 kg

DRUGS (1)
  1. LEVOFLOXACIN [Suspect]
     Indication: CHEST DISCOMFORT
     Route: 042
     Dates: start: 20130518, end: 20130518

REACTIONS (2)
  - Erythema [None]
  - Pruritus [None]
